FAERS Safety Report 9932091 (Version 2)
Quarter: 2014Q1

REPORT INFORMATION
  Report Type: Spontaneous
  Country: US (occurrence: US)
  Receive Date: 20140228
  Receipt Date: 20140228
  Transmission Date: 20141002
  Serious: No
  Sender: FDA-Public Use
  Company Number: US-ABBVIE-13P-163-1125631-00

PATIENT
  Sex: Male
  Weight: 92.62 kg

DRUGS (13)
  1. TESTOSTERONE [Concomitant]
     Indication: ASTHENIA
  2. ANDROGEL [Suspect]
     Indication: BLOOD TESTOSTERONE DECREASED
     Dosage: DOES NOT REMEMBER THE DOSE
  3. ANDROGEL [Suspect]
     Indication: MUSCLE BUILDING THERAPY
  4. ANDROGEL [Suspect]
     Indication: ASTHENIA
  5. ANDROGEL [Suspect]
     Indication: BLOOD TESTOSTERONE DECREASED
     Dosage: TWO PUMPS DAILY, 88G
     Route: 058
     Dates: start: 2012
  6. ANDROGEL [Suspect]
     Indication: MUSCLE BUILDING THERAPY
  7. ANDROGEL [Suspect]
     Indication: ASTHENIA
  8. ASPIRIN [Concomitant]
     Indication: PRODUCT USED FOR UNKNOWN INDICATION
     Route: 048
  9. METOPROLOL [Concomitant]
     Indication: ATRIAL FIBRILLATION
  10. PERCOCET [Concomitant]
     Indication: PRODUCT USED FOR UNKNOWN INDICATION
  11. ZERALTA [Concomitant]
     Indication: PRODUCT USED FOR UNKNOWN INDICATION
  12. TESTOSTERONE [Concomitant]
     Indication: BLOOD TESTOSTERONE DECREASED
     Route: 030
  13. TESTOSTERONE [Concomitant]
     Indication: MUSCLE MASS

REACTIONS (3)
  - Blood pressure increased [Not Recovered/Not Resolved]
  - Drug ineffective [Not Recovered/Not Resolved]
  - Blood testosterone increased [Unknown]
